FAERS Safety Report 20308789 (Version 1)
Quarter: 2022Q1

REPORT INFORMATION
  Report Type: Spontaneous
  Country: US (occurrence: US)
  Receive Date: 20220107
  Receipt Date: 20220107
  Transmission Date: 20220424
  Serious: No
  Sender: FDA-Public Use
  Company Number: US-JNJFOC-20220103863

PATIENT
  Age: 52 Year
  Sex: Female

DRUGS (1)
  1. TREMFYA [Suspect]
     Active Substance: GUSELKUMAB
     Indication: Product used for unknown indication
     Dosage: PRN MEDICATIONS = AS NEEDED
     Route: 058
     Dates: start: 202101

REACTIONS (1)
  - Illness [Unknown]

NARRATIVE: CASE EVENT DATE: 20220104
